FAERS Safety Report 5507930-8 (Version None)
Quarter: 2007Q4

REPORT INFORMATION
  Report Type: 
  Country: None (occurrence: None)
  Receive Date: 20071106
  Receipt Date: 20071025
  Transmission Date: 20080405
  Serious: Yes (Other)
  Sender: FDA-Public Use
  Company Number: FR-PFIZER INC-2007079796

PATIENT
  Sex: Male
  Weight: 79 kg

DRUGS (11)
  1. ATORVASTATIN CALCIUM [Suspect]
     Route: 048
     Dates: start: 20070717, end: 20070829
  2. UNICORDIUM [Concomitant]
     Route: 048
  3. PLAVIX [Concomitant]
     Route: 048
  4. ACETYLSALICYLIC ACID SRT [Concomitant]
     Route: 048
  5. STABLON [Concomitant]
     Dosage: DAILY DOSE:37.5MG
     Route: 048
  6. LORAZEPAM [Concomitant]
     Dosage: DAILY DOSE:7.5MG
     Route: 048
  7. BRONCHODUAL [Concomitant]
     Route: 055
  8. EUROBIOL [Concomitant]
     Route: 048
  9. THERALENE [Concomitant]
     Dosage: DAILY DOSE:5MG-FREQ:DAILY
     Route: 048
  10. OMEPRAZOLE [Concomitant]
     Dosage: DAILY DOSE:10MG-FREQ:DAILY
     Route: 048
  11. VASOBRAL [Concomitant]
     Route: 048

REACTIONS (2)
  - DIPLEGIA [None]
  - MYALGIA [None]
